FAERS Safety Report 12447692 (Version 1)
Quarter: 2016Q2

REPORT INFORMATION
  Report Type: Spontaneous
  Country: US (occurrence: None)
  Receive Date: 20160607
  Receipt Date: 20160607
  Transmission Date: 20160815
  Serious: No
  Sender: FDA-Public Use
  Company Number: None

PATIENT
  Age: 49 Year
  Sex: Male

DRUGS (1)
  1. LAMOTRIGINE 150MG [Suspect]
     Active Substance: LAMOTRIGINE
     Route: 048
     Dates: start: 201510

REACTIONS (4)
  - Dizziness [None]
  - Nausea [None]
  - Headache [None]
  - Seizure [None]

NARRATIVE: CASE EVENT DATE: 201510
